FAERS Safety Report 5506960-X (Version None)
Quarter: 2007Q4

REPORT INFORMATION
  Report Type: 
  Country: None (occurrence: None)
  Receive Date: 20071102
  Receipt Date: 20071022
  Transmission Date: 20080405
  Serious: Yes (Hospitalization)
  Sender: FDA-Public Use
  Company Number: S07-USA-05515-01

PATIENT
  Age: 89 Year
  Sex: Female

DRUGS (5)
  1. NAMENDA [Suspect]
     Indication: DEMENTIA
     Dosage: 5 MG QD PO
     Route: 048
     Dates: start: 20070921
  2. ARICEPT [Concomitant]
  3. ATIVAN [Concomitant]
  4. ZEGERID (OMEPRAZOLE/SODIUM BICARBONATE) [Concomitant]
  5. ZOCOR [Concomitant]

REACTIONS (3)
  - CONVULSION [None]
  - RESPIRATORY ACIDOSIS [None]
  - TONIC CLONIC MOVEMENTS [None]
